FAERS Safety Report 25645272 (Version 1)
Quarter: 2025Q3

REPORT INFORMATION
  Report Type: Spontaneous
  Country: US (occurrence: None)
  Receive Date: 20250804
  Receipt Date: 20250804
  Transmission Date: 20251021
  Serious: Yes (Hospitalization)
  Sender: FDA-CTU
  Company Number: None

PATIENT
  Age: 59 Year
  Sex: Male
  Weight: 94.5 kg

DRUGS (1)
  1. GAMMAGARD LIQUID [Suspect]
     Active Substance: HUMAN IMMUNOGLOBULIN G
     Indication: Autonomic neuropathy
     Route: 042

REACTIONS (6)
  - Infusion related reaction [None]
  - Blood pressure increased [None]
  - Headache [None]
  - Tremor [None]
  - Anaphylactic shock [None]
  - Eye pain [None]

NARRATIVE: CASE EVENT DATE: 20250731
